FAERS Safety Report 9554626 (Version 2)
Quarter: 2013Q3

REPORT INFORMATION
  Report Type: Spontaneous
  Country: US (occurrence: US)
  Receive Date: 20130925
  Receipt Date: 20130930
  Transmission Date: 20140515
  Serious: Yes (Hospitalization)
  Sender: FDA-Public Use
  Company Number: US-BAXTER-2013BAX036751

PATIENT
  Age: 38 Year
  Sex: Male

DRUGS (2)
  1. DIANEAL LOW CALCIUM [Suspect]
     Indication: PERITONEAL DIALYSIS
     Dosage: 4 EXCHANGES
     Route: 033
     Dates: start: 200712
  2. DIANEAL LOW CALCIUM [Suspect]
     Dosage: MID DAY EXCHANGE DAILY
     Route: 033
     Dates: start: 200712

REACTIONS (1)
  - Chest pain [Recovered/Resolved]
